FAERS Safety Report 19119394 (Version 1)
Quarter: 2021Q2

REPORT INFORMATION
  Report Type: Report from Study
  Country: CO (occurrence: CO)
  Receive Date: 20210411
  Receipt Date: 20210411
  Transmission Date: 20210717
  Serious: Yes (Other)
  Sender: FDA-Public Use
  Company Number: CO-JNJFOC-20210417898

PATIENT
  Age: 8 Decade
  Sex: Female
  Weight: 44 kg

DRUGS (2)
  1. SIMPONI [Suspect]
     Active Substance: GOLIMUMAB
     Indication: RHEUMATOID ARTHRITIS
     Route: 058
     Dates: start: 20180416
  2. SIMPONI [Suspect]
     Active Substance: GOLIMUMAB
     Dosage: LAST ADMINISTRATION: 25?FEB?2021
     Route: 058
     Dates: start: 20200713

REACTIONS (1)
  - Ocular neoplasm [Not Recovered/Not Resolved]

NARRATIVE: CASE EVENT DATE: 2020
